FAERS Safety Report 20750189 (Version 1)
Quarter: 2022Q2

REPORT INFORMATION
  Report Type: Spontaneous
  Country: US (occurrence: US)
  Receive Date: 20220426
  Receipt Date: 20220426
  Transmission Date: 20220721
  Serious: No
  Sender: FDA-Public Use
  Company Number: US-PFIZER INC-202101182857

PATIENT
  Age: 65 Year
  Sex: Female
  Weight: 61.23 kg

DRUGS (2)
  1. CHANTIX [Suspect]
     Active Substance: VARENICLINE TARTRATE
     Indication: Smoking cessation therapy
     Dosage: UNK (STARTED WITH STARTER PACK 0.5MG TABLETS,THEN 1MG TABLETS SHE THINKS TWICE DAILY)
     Dates: end: 2021
  2. WELLBUTRIN [Concomitant]
     Active Substance: BUPROPION HYDROCHLORIDE
     Indication: Depression
     Dosage: UNK
     Dates: start: 2020, end: 2020

REACTIONS (3)
  - Nausea [Recovered/Resolved]
  - Drug ineffective [Unknown]
  - Recalled product administered [Unknown]

NARRATIVE: CASE EVENT DATE: 20210618
